FAERS Safety Report 9206229 (Version 1)
Quarter: 2013Q2

REPORT INFORMATION
  Report Type: Spontaneous
  Country: US (occurrence: US)
  Receive Date: 20130403
  Receipt Date: 20130403
  Transmission Date: 20140414
  Serious: No
  Sender: FDA-Public Use
  Company Number: US-PFIZER INC-2013102194

PATIENT
  Age: 77 Year
  Sex: Male

DRUGS (1)
  1. NITROSTAT [Suspect]
     Indication: CHEST PAIN
     Dosage: 0.4 MG, AS NEEDED (TWO OR THREE TIMES A WEEK OR SOMETIMES COUPLE OF WEEKS WITHOUT IT)

REACTIONS (1)
  - Drug ineffective [Unknown]
